FAERS Safety Report 19092728 (Version 2)
Quarter: 2024Q1

REPORT INFORMATION
  Report Type: Spontaneous
  Country: GB (occurrence: GB)
  Receive Date: 20210405
  Receipt Date: 20240219
  Transmission Date: 20240409
  Serious: Yes (Death, Hospitalization, Other)
  Sender: FDA-Public Use
  Company Number: GB-ROCHE-2248032

PATIENT
  Age: 81 Year
  Sex: Female

DRUGS (49)
  1. LETROZOLE [Suspect]
     Active Substance: LETROZOLE
     Indication: Breast cancer metastatic
     Dosage: DOSAGE TEXT: 2.5 MILLIGRAM, QD
     Route: 048
     Dates: start: 20160413, end: 20180704
  2. INSULIN HUMAN [Concomitant]
     Active Substance: INSULIN HUMAN
     Dosage: DOSAGE TEXT: UNK
     Route: 058
     Dates: start: 20190620, end: 20190705
  3. AMLODIPINE [Concomitant]
     Active Substance: AMLODIPINE BESYLATE
     Route: 048
     Dates: start: 20180915, end: 20190529
  4. ATORVASTATIN [Concomitant]
     Active Substance: ATORVASTATIN
     Route: 048
  5. BUDESONIDE [Concomitant]
     Active Substance: BUDESONIDE
     Route: 048
     Dates: start: 20190403, end: 20190523
  6. CALCIUM\CHOLECALCIFEROL [Concomitant]
     Active Substance: CALCIUM\CHOLECALCIFEROL
     Dosage: DOSAGE TEXT: 2 UNK, QD
     Route: 048
     Dates: start: 20160323
  7. CANDESARTAN [Concomitant]
     Active Substance: CANDESARTAN
     Route: 048
  8. CHLORHEXIDINE [Concomitant]
     Active Substance: CHLORHEXIDINE\CHLORHEXIDINE GLUCONATE
     Indication: Prophylaxis
     Dosage: DOSAGE TEXT: 4 UNK, QD
     Route: 048
     Dates: start: 20160225
  9. COCODAMOL [Concomitant]
     Active Substance: ACETAMINOPHEN\CODEINE PHOSPHATE
     Indication: Back pain
     Dosage: DOSAGE TEXT: 2 TABLET
     Route: 048
     Dates: start: 20160707
  10. CODEINE PHOSPHATE [Concomitant]
     Active Substance: CODEINE PHOSPHATE
  11. DOMPERIDONE [Concomitant]
     Active Substance: DOMPERIDONE
     Route: 048
     Dates: start: 20160225
  12. GLICLAZIDE [Concomitant]
     Active Substance: GLICLAZIDE
     Dosage: DOSAGE TEXT: 40 MILLIGRAM, QD
     Route: 048
     Dates: start: 20190620, end: 20190705
  13. GLICLAZIDE [Concomitant]
     Active Substance: GLICLAZIDE
     Dosage: DOSAGE TEXT: 80 MILLIGRAM, QD
     Route: 048
     Dates: start: 201809, end: 20190424
  14. GLICLAZIDE [Concomitant]
     Active Substance: GLICLAZIDE
     Dosage: DOSAGE TEXT: 80 MILLIGRAM, QD
     Route: 048
     Dates: start: 20190425, end: 201905
  15. LINAGLIPTIN [Concomitant]
     Active Substance: LINAGLIPTIN
     Dosage: DOSAGE TEXT: 5 MILLIGRAM, QD
     Route: 048
     Dates: start: 201809, end: 201905
  16. LOPERAMIDE [Concomitant]
     Active Substance: LOPERAMIDE
     Dosage: DOSAGE TEXT: 2 MILLIGRAM
     Route: 048
     Dates: start: 20160225
  17. POLYETHYLENE GLYCOLS [Concomitant]
     Active Substance: POLYETHYLENE GLYCOLS
     Dosage: DOSAGE TEXT: 2 UNK, QD
     Route: 048
  18. MAGNESIUM GLYCEROPHOSPHATE [Concomitant]
     Active Substance: MAGNESIUM GLYCEROPHOSPHATE
     Indication: Hypomagnesaemia
     Dosage: DOSAGE TEXT: UNK
     Route: 048
     Dates: start: 20160526, end: 20160530
  19. METFORMIN [Concomitant]
     Active Substance: METFORMIN HYDROCHLORIDE
     Route: 048
  20. METFORMIN [Concomitant]
     Active Substance: METFORMIN HYDROCHLORIDE
     Dosage: DOSAGE TEXT: 2000 MILLIGRAM, QD
     Route: 048
  21. METOCLOPRAMIDE [Concomitant]
     Active Substance: METOCLOPRAMIDE
     Route: 048
  22. MESALAMINE [Concomitant]
     Active Substance: MESALAMINE
     Dosage: DOSAGE TEXT: 800 MILLIGRAM, QD
     Route: 048
     Dates: start: 20170523
  23. UNSPECIFIED INGREDIENT [Concomitant]
     Active Substance: UNSPECIFIED INGREDIENT
     Dosage: DOSAGE TEXT: UNK, SANDOZ EFFERVESCENT
     Dates: start: 20190611, end: 20190614
  24. POTASSIUM CHLORIDE [Concomitant]
     Active Substance: POTASSIUM CHLORIDE
     Dosage: DOSAGE TEXT: UNK
     Route: 042
     Dates: start: 20190611, end: 20190620
  25. CINACALCET HYDROCHLORIDE [Suspect]
     Active Substance: CINACALCET HYDROCHLORIDE
     Indication: Product used for unknown indication
     Dosage: DOSAGE TEXT: 30 MILLIGRAM, QD
     Route: 048
     Dates: start: 20190413, end: 201907
  26. PREDNISOLONE [Concomitant]
     Active Substance: PREDNISOLONE
     Dosage: DOSAGE TEXT: 30 MILLIGRAM, QD
     Route: 048
     Dates: start: 20190606, end: 20190618
  27. RIVAROXABAN [Concomitant]
     Active Substance: RIVAROXABAN
  28. SANDO-K [Concomitant]
  29. SITAGLIPTIN [Concomitant]
     Active Substance: SITAGLIPTIN
     Route: 048
  30. SODIUM CHLORIDE [Concomitant]
     Active Substance: SODIUM CHLORIDE
     Dosage: DOSAGE TEXT: 0.9 PERCENT
     Route: 042
     Dates: start: 20190508, end: 20190510
  31. TINZAPARIN [Concomitant]
     Active Substance: TINZAPARIN
  32. TRAMADOL HYDROCHLORIDE [Concomitant]
     Active Substance: TRAMADOL HYDROCHLORIDE
     Route: 048
     Dates: start: 20160217
  33. ZOPICLONE [Concomitant]
     Active Substance: ZOPICLONE
     Dosage: DOSAGE TEXT: 3.75 MILLIGRAM, QD
     Route: 048
     Dates: start: 20160217
  34. DEXAMETHASONE [Concomitant]
     Active Substance: DEXAMETHASONE
     Dosage: DOSAGE TEXT: 16 MILLIGRAM, QD
     Route: 048
     Dates: start: 20160225
  35. ZOLEDRONIC ACID [Concomitant]
     Active Substance: ZOLEDRONIC ACID
     Indication: Prophylaxis
     Dosage: DOSAGE TEXT: 3.3 MILLIGRAM, QMO
     Route: 042
     Dates: start: 20170209, end: 20170323
  36. ZOLEDRONIC ACID [Concomitant]
     Active Substance: ZOLEDRONIC ACID
     Indication: Prophylaxis
     Dosage: DOSAGE TEXT: 3.3 MILLIGRAM, QMO
     Route: 042
     Dates: start: 20190408, end: 20190408
  37. ZOLEDRONIC ACID [Concomitant]
     Active Substance: ZOLEDRONIC ACID
     Indication: Prophylaxis
     Dosage: DOSAGE TEXT: 3.3 MILLIGRAM, QMO
     Route: 042
     Dates: start: 20170628, end: 20171220
  38. ZOLEDRONIC ACID [Concomitant]
     Active Substance: ZOLEDRONIC ACID
     Indication: Prophylaxis
     Dosage: DOSAGE TEXT: 3.3 MILLIGRAM, QMO
     Route: 042
     Dates: start: 20160226
  39. ZOLEDRONIC ACID [Concomitant]
     Active Substance: ZOLEDRONIC ACID
     Indication: Prophylaxis
     Dosage: DOSAGE TEXT: 3.3 MILLIGRAM, QMO
     Route: 042
     Dates: start: 20160414, end: 20170112
  40. PERTUZUMAB [Suspect]
     Active Substance: PERTUZUMAB
     Indication: HER2 positive breast cancer
     Dosage: DOSAGE TEXT: 840 MILLIGRAM, Q3WK
     Route: 042
     Dates: start: 20160225, end: 20180704
  41. PERTUZUMAB [Suspect]
     Active Substance: PERTUZUMAB
     Indication: HER2 positive breast cancer
     Dosage: DOSAGE TEXT: 840 MILLIGRAM, Q3WK
     Route: 042
     Dates: start: 20160225, end: 20160225
  42. TAMOXIFEN CITRATE [Suspect]
     Active Substance: TAMOXIFEN CITRATE
     Indication: HER2 positive breast cancer
     Dosage: DOSAGE TEXT: 20 MILLIGRAM, QD
     Route: 048
     Dates: start: 20180704, end: 20180915
  43. TRASTUZUMAB [Suspect]
     Active Substance: TRASTUZUMAB
     Indication: HER2 positive breast cancer
     Dosage: DOSAGE TEXT: 400 MILLIGRAM
     Route: 042
     Dates: start: 20160225, end: 20160617
  44. TRASTUZUMAB [Suspect]
     Active Substance: TRASTUZUMAB
     Indication: HER2 positive breast cancer
     Dosage: DOSAGE TEXT: 525 MILLIGRAM, Q3WK
     Route: 042
     Dates: start: 20160225, end: 20160225
  45. TRASTUZUMAB [Suspect]
     Active Substance: TRASTUZUMAB
     Indication: HER2 positive breast cancer
     Dosage: DOSAGE TEXT: 350 MILLIGRAM, Q3WK
     Route: 042
     Dates: start: 20160707, end: 20180822
  46. ADO-TRASTUZUMAB EMTANSINE [Suspect]
     Active Substance: ADO-TRASTUZUMAB EMTANSINE
     Indication: HER2 positive breast cancer
     Route: 065
  47. ADO-TRASTUZUMAB EMTANSINE [Suspect]
     Active Substance: ADO-TRASTUZUMAB EMTANSINE
     Indication: HER2 positive breast cancer
     Dosage: DOSAGE TEXT: 220 MILLIGRAM, Q3WK
     Route: 042
     Dates: start: 20180928
  48. XGEVA [Suspect]
     Active Substance: DENOSUMAB
     Indication: Product used for unknown indication
     Dosage: DOSAGE TEXT: 120 MILLIGRAM
     Route: 058
     Dates: start: 20180110, end: 20190426
  49. DOCETAXEL [Suspect]
     Active Substance: DOCETAXEL\DOCETAXEL ANHYDROUS
     Indication: Breast cancer metastatic
     Dosage: DOSAGE TEXT: 65 MILLIGRAM, Q3WK
     Route: 042
     Dates: start: 20180226, end: 20180226

REACTIONS (4)
  - Disease progression [Fatal]
  - Pulmonary embolism [Recovered/Resolved]
  - Off label use [Unknown]
  - Back pain [Not Recovered/Not Resolved]

NARRATIVE: CASE EVENT DATE: 20180915
